FAERS Safety Report 7177096-X (Version None)
Quarter: 2010Q4

REPORT INFORMATION
  Report Type: 
  Country: None (occurrence: None)
  Receive Date: 20101220
  Receipt Date: 20101207
  Transmission Date: 20110411
  Serious: Yes (Other)
  Sender: FDA-Public Use
  Company Number: PHHY2010US38371

PATIENT
  Sex: Female
  Weight: 69.161 kg

DRUGS (13)
  1. FEMARA [Suspect]
     Indication: BREAST CANCER
     Dosage: 2.5 MG, QD
  2. PLAVIX [Concomitant]
     Indication: ANXIETY
  3. XANAX [Concomitant]
     Indication: ANXIETY
  4. LIPITOR [Concomitant]
     Indication: BLOOD CHOLESTEROL
  5. BYSTOLIC [Concomitant]
     Indication: CARDIAC DISORDER
  6. VITAMINS [Concomitant]
  7. SEROQUEL [Concomitant]
  8. ALPRAZOLAM [Concomitant]
  9. EMLA [Concomitant]
  10. BACTRIM DS [Concomitant]
  11. HYDROCODONE [Concomitant]
  12. ACETAMINOPHEN [Concomitant]
  13. HERCEPTIN [Concomitant]

REACTIONS (12)
  - ABDOMINAL PAIN UPPER [None]
  - ARTHRALGIA [None]
  - CARDIAC DISORDER [None]
  - FATIGUE [None]
  - FEELING JITTERY [None]
  - HEADACHE [None]
  - MOOD ALTERED [None]
  - NERVOUSNESS [None]
  - NIGHT SWEATS [None]
  - OSTEOARTHRITIS [None]
  - RESTLESSNESS [None]
  - URINARY TRACT INFECTION [None]
